FAERS Safety Report 16840134 (Version 1)
Quarter: 2019Q3

REPORT INFORMATION
  Report Type: Spontaneous
  Country: US (occurrence: US)
  Receive Date: 20190801
  Receipt Date: 20190801
  Transmission Date: 20191005
  Serious: Yes (Other)
  Sender: FDA-Public Use
  Company Number: None

PATIENT
  Age: 78 Year
  Sex: Male

DRUGS (6)
  1. PROCHLORPER TAB 10MG [Concomitant]
  2. TANDEM CAP [Concomitant]
  3. CAPECITABINE, 500 MG [Suspect]
     Active Substance: CAPECITABINE
     Route: 048
     Dates: start: 20190531
  4. ONDANSETRON [Concomitant]
     Active Substance: ONDANSETRON
  5. CIPROFLOXACIN TAB 500MG [Concomitant]
  6. TAMSULOSIN CAP 0.4 MG [Concomitant]

REACTIONS (1)
  - Diarrhoea [None]
